FAERS Safety Report 5349031-8 (Version None)
Quarter: 2007Q2

REPORT INFORMATION
  Report Type: 
  Country: None (occurrence: None)
  Receive Date: 20070516
  Receipt Date: 20070226
  Transmission Date: 20071010
  Serious: No
  Sender: FDA-Public Use
  Company Number: 200711898US

PATIENT
  Sex: Male

DRUGS (2)
  1. APIDRA [Suspect]
     Dosage: 5 U BID INJ
     Route: 042
     Dates: start: 20070224
  2. APIDRA [Suspect]
     Dosage: 10 U BID INJ
     Route: 042
     Dates: start: 20070224

REACTIONS (3)
  - BLOOD GLUCOSE INCREASED [None]
  - DIARRHOEA [None]
  - DRUG INEFFECTIVE [None]
